FAERS Safety Report 25307660 (Version 3)
Quarter: 2025Q4

REPORT INFORMATION
  Report Type: Spontaneous
  Country: EU (occurrence: EU)
  Receive Date: 20250513
  Receipt Date: 20251121
  Transmission Date: 20260118
  Serious: Yes (Life-Threatening, Hospitalization, Other)
  Sender: PFIZER
  Company Number: EU-HIKMA PHARMACEUTICALS USA INC.-ES-H14001-25-03718

PATIENT
  Age: 65 Year
  Sex: Female
  Weight: 70.5 kg

DRUGS (31)
  1. CARBOPLATIN [Suspect]
     Active Substance: CARBOPLATIN
     Indication: Non-small cell lung cancer
     Dosage: AUC 5 (TOTAL DOSE ADMINISTERED: 495MG) EVERY 3 WEEKS
     Route: 042
     Dates: start: 20250102, end: 20250102
  2. CARBOPLATIN [Suspect]
     Active Substance: CARBOPLATIN
     Dosage: AUC 4 (TOTAL DOSE ADMINISTERED: 396MG) EVERY 3 WEEKS
     Route: 042
     Dates: start: 20250123, end: 20250123
  3. CARBOPLATIN [Suspect]
     Active Substance: CARBOPLATIN
     Dosage: AUC 4 (TOTAL DOSE ADMINISTERED: 396MG) EVERY 3 WEEKS
     Route: 042
     Dates: start: 20250213, end: 20250213
  4. CARBOPLATIN [Suspect]
     Active Substance: CARBOPLATIN
     Dosage: AUC 3.75 (TOTAL DOSE ADMINISTERED: 371 MG), EVERY 3 WEEKS
     Route: 042
     Dates: start: 20250306, end: 20250306
  5. PEMETREXED [Suspect]
     Active Substance: PEMETREXED
     Indication: Non-small cell lung cancer
     Dosage: 500 MG/M2 (TOTAL DOSE:810MG), EVERY 3 WEEKS
     Route: 042
     Dates: start: 20250102, end: 20250102
  6. PEMETREXED [Suspect]
     Active Substance: PEMETREXED
     Dosage: 450 MG/M2 (TOTAL DOSE:729MG), EVERY 3 WEEKS
     Route: 042
     Dates: start: 20250123, end: 20250123
  7. PEMETREXED [Suspect]
     Active Substance: PEMETREXED
     Dosage: 450 MG/M2 (TOTAL DOSE:729MG), EVERY 3 WEEKS
     Route: 042
     Dates: start: 20250213, end: 20250213
  8. PEMETREXED [Suspect]
     Active Substance: PEMETREXED
     Dosage: 375 MG/M2 (TOTAL DOSE:608MG), EVERY 3 WEEKS
     Route: 042
     Dates: start: 20250306, end: 20250306
  9. PEMETREXED [Suspect]
     Active Substance: PEMETREXED
     Dosage: 375 MG/M2 (TOTAL DOSE:608MG), EVERY 3 WEEKS
     Route: 042
     Dates: start: 20250327, end: 20250327
  10. PEMBROLIZUMAB [Suspect]
     Active Substance: PEMBROLIZUMAB
     Indication: Non-small cell lung cancer
     Dosage: 750 MILLIGRAM, 3W
     Route: 042
     Dates: start: 20250102, end: 20250102
  11. PEMBROLIZUMAB [Suspect]
     Active Substance: PEMBROLIZUMAB
     Dosage: 750 MILLIGRAM, 3W
     Route: 042
     Dates: start: 20250123, end: 20250123
  12. PEMBROLIZUMAB [Suspect]
     Active Substance: PEMBROLIZUMAB
     Dosage: 750 MILLIGRAM, 3W
     Route: 042
     Dates: start: 20250213, end: 20250213
  13. PEMBROLIZUMAB [Suspect]
     Active Substance: PEMBROLIZUMAB
     Dosage: 750 MILLIGRAM, 3W
     Route: 042
     Dates: start: 20250306, end: 20250306
  14. PEMBROLIZUMAB [Suspect]
     Active Substance: PEMBROLIZUMAB
     Dosage: 750 MILLIGRAM, 3W
     Route: 042
     Dates: start: 20250327, end: 20250327
  15. LEVOTHYROXINE SODIUM [Concomitant]
     Active Substance: LEVOTHYROXINE SODIUM
     Dosage: UNK
     Dates: start: 2016
  16. ENALAPRIL [Concomitant]
     Active Substance: ENALAPRIL
     Dosage: UNK
     Dates: start: 2007
  17. ATORVASTATIN [Concomitant]
     Active Substance: ATORVASTATIN
     Dosage: UNK
     Dates: start: 2007
  18. SPIRIVA [Concomitant]
     Active Substance: TIOTROPIUM BROMIDE MONOHYDRATE
     Dosage: UNK
     Dates: start: 202411
  19. CYANOCOBALAMIN\FOLIC ACID [Concomitant]
     Active Substance: CYANOCOBALAMIN\FOLIC ACID
     Dosage: UNK
     Dates: start: 20241205
  20. OPTOVIT E [Concomitant]
     Dosage: UNK
     Dates: start: 20241209
  21. MYCOSTATIN [Concomitant]
     Active Substance: NYSTATIN
     Dosage: UNK
     Dates: start: 20241205
  22. OMEPRAZOLE [Concomitant]
     Active Substance: OMEPRAZOLE
     Dosage: UNK
     Dates: start: 20250112
  23. PREDNICARBATE [Concomitant]
     Active Substance: PREDNICARBATE
     Dosage: UNK
     Dates: start: 20250306
  24. FOSAPREPITANT [Concomitant]
     Active Substance: FOSAPREPITANT
     Dosage: UNK
     Dates: start: 20250306, end: 20250306
  25. ONDANSETRON [Concomitant]
     Active Substance: ONDANSETRON
     Dosage: UNK
     Dates: start: 20250306, end: 20250327
  26. ACETAMINOPHEN [Concomitant]
     Active Substance: ACETAMINOPHEN
     Dosage: UNK
     Dates: start: 20250306, end: 20250327
  27. DEXAMETHASONE [Concomitant]
     Active Substance: DEXAMETHASONE
     Dosage: UNK
     Dates: start: 20250306, end: 20250327
  28. DEXCHLORPHENIRAMINE [Concomitant]
     Active Substance: DEXCHLORPHENIRAMINE
     Dosage: UNK
     Dates: start: 20250306, end: 20250327
  29. CAPTOPRIL [Concomitant]
     Active Substance: CAPTOPRIL
     Dosage: UNK
     Dates: start: 20250327, end: 20250327
  30. DIAZEPAM [Concomitant]
     Active Substance: DIAZEPAM
     Dosage: UNK
     Route: 065
     Dates: start: 20250327, end: 20250327
  31. AMOXICILLIN\CLAVULANIC ACID [Concomitant]
     Active Substance: AMOXICILLIN\CLAVULANIC ACID
     Dosage: 1 TABLET, TID
     Route: 065
     Dates: start: 20250403

REACTIONS (7)
  - Febrile neutropenia [Recovered/Resolved]
  - Asthenia [Unknown]
  - Pyrexia [Unknown]
  - Condition aggravated [Unknown]
  - Arthralgia [Unknown]
  - Myalgia [Unknown]
  - Diarrhoea [Unknown]

NARRATIVE: CASE EVENT DATE: 20250405
